FAERS Safety Report 5115343-6 (Version None)
Quarter: 2006Q3

REPORT INFORMATION
  Report Type: 
  Country: None (occurrence: None)
  Receive Date: 20060922
  Receipt Date: 20060830
  Transmission Date: 20061208
  Serious: Yes (Hospitalization)
  Sender: FDA-Public Use
  Company Number: 2006-05-0485

PATIENT
  Age: 71 Year
  Sex: Male
  Weight: 59 kg

DRUGS (4)
  1. PEG-INTRON [Suspect]
     Indication: HEPATITIS C
     Dosage: SEE IMAGE, SC
     Route: 058
     Dates: start: 20050628, end: 20060411
  2. PEG-INTRON [Suspect]
     Indication: HEPATITIS C
     Dosage: SEE IMAGE, SC
     Route: 058
     Dates: start: 20060418, end: 20060418
  3. REBETOL [Suspect]
     Indication: HEPATITIS C
     Dosage: SEE IMAGE, PO
     Route: 048
     Dates: start: 20050628, end: 20060416
  4. REBETOL [Suspect]
     Indication: HEPATITIS C
     Dosage: SEE IMAGE, PO
     Route: 048
     Dates: start: 20060417, end: 20060418

REACTIONS (4)
  - DRY SKIN [None]
  - FACE OEDEMA [None]
  - PRURITUS [None]
  - RASH [None]
